FAERS Safety Report 24883168 (Version 2)
Quarter: 2025Q1

REPORT INFORMATION
  Report Type: Report from Study
  Country: US (occurrence: US)
  Receive Date: 20250124
  Receipt Date: 20250304
  Transmission Date: 20250408
  Serious: Yes (Congenital Anomaly)
  Sender: TEVA
  Company Number: US-TEVA-VS-3288460

PATIENT
  Age: 0 Day
  Sex: Female

DRUGS (3)
  1. RIZATRIPTAN [Suspect]
     Active Substance: RIZATRIPTAN
     Indication: Migraine
     Route: 064
     Dates: start: 202209, end: 202312
  2. NORTRIPTYLINE [Suspect]
     Active Substance: NORTRIPTYLINE
     Indication: Migraine prophylaxis
     Route: 064
     Dates: start: 202306, end: 20231226
  3. NURTEC ODT [Suspect]
     Active Substance: RIMEGEPANT SULFATE
     Indication: Migraine
     Route: 064
     Dates: start: 20231204

REACTIONS (2)
  - Plagiocephaly [Not Recovered/Not Resolved]
  - Foetal exposure during pregnancy [Unknown]
